FAERS Safety Report 9361985 (Version 1)
Quarter: 2013Q2

REPORT INFORMATION
  Report Type: Spontaneous
  Country: US (occurrence: US)
  Receive Date: 20130621
  Receipt Date: 20130621
  Transmission Date: 20140414
  Serious: Yes (Other)
  Sender: FDA-Public Use
  Company Number: US-PFIZER INC-2013182135

PATIENT
  Sex: 0

DRUGS (2)
  1. VANCOMYCIN HCL [Suspect]
     Dosage: UNK
  2. ROCEPHIN [Suspect]
     Dosage: 1 DF, UNK

REACTIONS (2)
  - Anaphylactic reaction [Unknown]
  - Skin discolouration [Unknown]
